FAERS Safety Report 15531409 (Version 1)
Quarter: 2018Q4

REPORT INFORMATION
  Report Type: Spontaneous
  Country: CA (occurrence: CA)
  Receive Date: 20181019
  Receipt Date: 20181019
  Transmission Date: 20190205
  Serious: Yes (Other)
  Sender: FDA-Public Use
  Company Number: CA-ROCHE-2201098

PATIENT
  Sex: Female

DRUGS (4)
  1. FAMPYRA [Concomitant]
     Active Substance: DALFAMPRIDINE
     Dosage: INDICATION: HELPS WITH MOBILITY (MULTIPLE SCLEROSIS SYMPTOMS)
     Route: 065
  2. OCREVUS [Suspect]
     Active Substance: OCRELIZUMAB
     Indication: RELAPSING-REMITTING MULTIPLE SCLEROSIS
     Dosage: SHE RECEIVED HER SECOND DOSE ON 18/APR/2018
     Route: 065
     Dates: start: 20180405
  3. TECTA [Concomitant]
     Active Substance: PANTOPRAZOLE MAGNESIUM
     Dosage: INDICATION: STOMACH PROTECTION
     Route: 065
  4. BACLOFEN. [Concomitant]
     Active Substance: BACLOFEN

REACTIONS (2)
  - Anxiety [Unknown]
  - Nightmare [Unknown]
